FAERS Safety Report 6695543-4 (Version None)
Quarter: 2010Q2

REPORT INFORMATION
  Report Type: 
  Country: None (occurrence: None)
  Receive Date: 20100426
  Receipt Date: 20100419
  Transmission Date: 20101027
  Serious: Yes (Hospitalization)
  Sender: FDA-Public Use
  Company Number: CH-BIOGENIDEC-2010BI006675

PATIENT
  Age: 25 Year
  Sex: Female

DRUGS (2)
  1. TYSABRI [Suspect]
     Indication: MULTIPLE SCLEROSIS
     Route: 042
     Dates: start: 20080701, end: 20091222
  2. CONTRACEPTIVE PILL [Concomitant]
     Route: 048
     Dates: end: 20091201

REACTIONS (2)
  - MYELOFIBROSIS [None]
  - NORMOCHROMIC NORMOCYTIC ANAEMIA [None]
